FAERS Safety Report 6209042-7 (Version None)
Quarter: 2009Q2

REPORT INFORMATION
  Report Type: 
  Country: None (occurrence: None)
  Receive Date: 20090522
  Receipt Date: 20090209
  Transmission Date: 20091009
  Serious: No
  Sender: FDA-Public Use
  Company Number: 8042787

PATIENT
  Age: 27 Year
  Sex: Female
  Weight: 68.04 kg

DRUGS (1)
  1. CIMZIA [Suspect]
     Indication: CROHN'S DISEASE
     Dosage: 400 MG 1/2W SC : 400 MG /M SC
     Route: 058
     Dates: start: 20090128

REACTIONS (3)
  - INJECTION SITE HAEMATOMA [None]
  - INJECTION SITE PAIN [None]
  - UPPER RESPIRATORY TRACT INFECTION [None]
